FAERS Safety Report 8072148-4 (Version None)
Quarter: 2012Q1

REPORT INFORMATION
  Report Type: 
  Country: None (occurrence: None)
  Receive Date: 20120126
  Receipt Date: 20120119
  Transmission Date: 20120608
  Serious: Yes (Death)
  Sender: FDA-Public Use
  Company Number: US-ELI_LILLY_AND_COMPANY-US201004000829

PATIENT
  Sex: Female

DRUGS (4)
  1. ZYPREXA [Suspect]
     Indication: DEPRESSION
     Dosage: 1.25 MG, QD
  2. ZYPREXA [Suspect]
     Dosage: 2.5 MG, EACH EVENING
  3. EFFEXOR [Concomitant]
  4. ATIVAN [Concomitant]

REACTIONS (4)
  - UROSEPSIS [None]
  - SEPSIS [None]
  - WRONG TECHNIQUE IN DRUG USAGE PROCESS [None]
  - OFF LABEL USE [None]
